FAERS Safety Report 9128069 (Version 1)
Quarter: 2013Q1

REPORT INFORMATION
  Report Type: Spontaneous
  Country: CA (occurrence: CA)
  Receive Date: 20130228
  Receipt Date: 20130228
  Transmission Date: 20140127
  Serious: Yes (Other)
  Sender: FDA-Public Use
  Company Number: CA-JNJFOC-20130214038

PATIENT
  Sex: Female
  Weight: 49.9 kg

DRUGS (1)
  1. TRAMACET [Suspect]
     Indication: PAIN
     Dosage: FOUR TIMES A DAY (QID)
     Route: 048
     Dates: start: 2011

REACTIONS (2)
  - Loss of consciousness [Unknown]
  - Amnesia [Recovered/Resolved]
